FAERS Safety Report 15122230 (Version 4)
Quarter: 2019Q2

REPORT INFORMATION
  Report Type: Spontaneous
  Country: FR (occurrence: FR)
  Receive Date: 20180709
  Receipt Date: 20190425
  Transmission Date: 20190711
  Serious: Yes (Hospitalization)
  Sender: FDA-Public Use
  Company Number: FR-MYLANLABS-2018M1040701

PATIENT
  Age: 47 Year
  Sex: Female
  Weight: 37.1 kg

DRUGS (8)
  1. IOMERON [Suspect]
     Active Substance: IOMEPROL
     Indication: PRODUCT USED FOR UNKNOWN INDICATION
     Dosage: UNK
     Route: 065
  2. ASPIRINE PROTECT [Suspect]
     Active Substance: ASPIRIN
     Indication: PROPHYLAXIS
     Dosage: 100 MG, QD
     Route: 048
     Dates: start: 20170215, end: 20170310
  3. SPECIAFOLDINE [Suspect]
     Active Substance: FOLIC ACID
     Indication: PRODUCT USED FOR UNKNOWN INDICATION
     Dosage: 0.4 MG, QD
     Route: 048
     Dates: start: 20170204
  4. RACECADOTRIL [Suspect]
     Active Substance: RACECADOTRIL
     Indication: DIARRHOEA
     Dosage: 300 MG, QD
     Route: 048
     Dates: start: 20170305
  5. MECIR [Suspect]
     Active Substance: TAMSULOSIN HYDROCHLORIDE
     Indication: BLADDER DILATATION
     Dosage: 0.4 MG, QD
     Route: 048
     Dates: start: 20170305
  6. PANTOPRAZOLE MYLAN 20 MG, COMPRIM? GASTRO-R?SISTANT [Suspect]
     Active Substance: PANTOPRAZOLE SODIUM
     Indication: PROPHYLAXIS AGAINST GASTROINTESTINAL ULCER
     Dosage: 20 MG, QD
     Route: 048
     Dates: start: 20170126
  7. PROPRANOLOL [Suspect]
     Active Substance: PROPRANOLOL HYDROCHLORIDE
     Indication: PRODUCT USED FOR UNKNOWN INDICATION
     Dosage: 40 MG, QD
     Route: 048
     Dates: start: 20170306
  8. VANCOMYCINE SANDOZ [Suspect]
     Active Substance: VANCOMYCIN
     Indication: INFLAMMATORY MARKER INCREASED
     Dosage: 2 G, QD
     Route: 042
     Dates: start: 20170218, end: 20170310

REACTIONS (3)
  - Rash maculo-papular [Recovered/Resolved]
  - Rash generalised [Recovered/Resolved]
  - Off label use [Unknown]

NARRATIVE: CASE EVENT DATE: 20170310
